FAERS Safety Report 23847259 (Version 2)
Quarter: 2024Q4

REPORT INFORMATION
  Report Type: Spontaneous
  Country: EG (occurrence: EG)
  Receive Date: 20240513
  Receipt Date: 20241023
  Transmission Date: 20250115
  Serious: Yes (Other)
  Sender: HIKMA
  Company Number: EG-HIKMA PHARMACEUTICALS-EG-H14001-24-03989

PATIENT
  Age: 25 Year
  Sex: Female
  Weight: 60 kg

DRUGS (6)
  1. DOXORUBICIN [Suspect]
     Active Substance: DOXORUBICIN
     Indication: Hodgkin^s disease
     Dosage: 40 MILLIGRAM, QOW
     Route: 041
     Dates: start: 20240402
  2. DOXORUBICIN [Suspect]
     Active Substance: DOXORUBICIN
     Dosage: 40 MILLIGRAM, QOW, SIX CYCLE, DAY ONE
     Route: 041
     Dates: start: 20240911
  3. DACARBAZINE [Suspect]
     Active Substance: DACARBAZINE
     Indication: Hodgkin^s disease
     Dosage: 600 MILLIGRAM, QOW
     Route: 041
     Dates: start: 20240402
  4. DACARBAZINE [Suspect]
     Active Substance: DACARBAZINE
     Dosage: 600 MILLIGRAM, QOW, SIX CYCLE, DAY ONE
     Route: 041
  5. VINCRISTINE SULFATE [Suspect]
     Active Substance: VINCRISTINE SULFATE
     Indication: Hodgkin^s disease
     Dosage: 2 MILLIGRAM, QOW
     Route: 041
     Dates: start: 20240402
  6. VINCRISTINE SULFATE [Suspect]
     Active Substance: VINCRISTINE SULFATE
     Dosage: 2 MILLIGRAM, QOW, CYCLE SIX, DAY ONE
     Route: 041
     Dates: start: 20240911

REACTIONS (4)
  - Neutropenia [Unknown]
  - White blood cell count decreased [Unknown]
  - Dysgeusia [Recovering/Resolving]
  - Dysphagia [Recovering/Resolving]

NARRATIVE: CASE EVENT DATE: 20240415
